FAERS Safety Report 18041445 (Version 3)
Quarter: 2025Q2

REPORT INFORMATION
  Report Type: Spontaneous
  Country: US (occurrence: US)
  Receive Date: 20200719
  Receipt Date: 20250628
  Transmission Date: 20250716
  Serious: Yes (Hospitalization, Other)
  Sender: AUROBINDO
  Company Number: US-BAXTER-2020BAX013682

PATIENT
  Sex: Female

DRUGS (11)
  1. CISATRACURIUM BESYLATE [Suspect]
     Active Substance: CISATRACURIUM BESYLATE
     Indication: Analgesic therapy
     Route: 065
  2. DEXMEDETOMIDINE HYDROCHLORIDE [Suspect]
     Active Substance: DEXMEDETOMIDINE HYDROCHLORIDE
     Indication: Sedative therapy
     Dosage: 1.5 MICROGRAM/KILOGRAM, EVERY HOUR
     Route: 065
  3. KETAMINE HYDROCHLORIDE [Suspect]
     Active Substance: KETAMINE HYDROCHLORIDE
     Route: 065
  4. LORAZEPAM [Suspect]
     Active Substance: LORAZEPAM
     Indication: Sedative therapy
     Route: 065
  5. METHADONE [Suspect]
     Active Substance: METHADONE HYDROCHLORIDE
     Indication: Analgesic therapy
     Route: 065
  6. FENTANYL [Suspect]
     Active Substance: FENTANYL
     Indication: Analgesic therapy
     Route: 065
  7. HYDROMORPHONE [Suspect]
     Active Substance: HYDROMORPHONE
     Indication: Analgesic therapy
     Dosage: 0.03 MILLIGRAM/KILOGRAM, EVERY HOUR
     Route: 065
  8. MIDAZOLAM [Suspect]
     Active Substance: MIDAZOLAM
     Indication: Sedative therapy
     Dosage: 0.21 MILLIGRAM/KILOGRAM, EVERY HOUR
     Route: 065
  9. PENTOBARBITAL [Suspect]
     Active Substance: PENTOBARBITAL
     Indication: Sedative therapy
     Route: 065
  10. CLONIDINE [Concomitant]
     Active Substance: CLONIDINE
     Indication: Product used for unknown indication
     Route: 065
  11. NALOXONE [Concomitant]
     Active Substance: NALOXONE
     Indication: Pruritus
     Route: 065

REACTIONS (3)
  - Pruritus [Unknown]
  - Delirium [Recovered/Resolved]
  - Tachyphylaxis [Unknown]
